FAERS Safety Report 25218320 (Version 1)
Quarter: 2025Q2

REPORT INFORMATION
  Report Type: Spontaneous
  Country: US (occurrence: US)
  Receive Date: 20250421
  Receipt Date: 20250421
  Transmission Date: 20250717
  Serious: No
  Sender: ROCHE
  Company Number: US-ROCHE-10000261594

PATIENT
  Sex: Female

DRUGS (1)
  1. OCREVUS [Suspect]
     Active Substance: OCRELIZUMAB
     Indication: Product used for unknown indication
     Route: 042

REACTIONS (4)
  - Incorrect drug administration rate [Unknown]
  - Throat irritation [Recovered/Resolved]
  - Throat tightness [Recovered/Resolved]
  - Dyspnoea [Recovered/Resolved]
